FAERS Safety Report 10240980 (Version 1)
Quarter: 2014Q2

REPORT INFORMATION
  Report Type: Spontaneous
  Country: GB (occurrence: GB)
  Receive Date: 20140617
  Receipt Date: 20140617
  Transmission Date: 20141212
  Serious: Yes (Other)
  Sender: FDA-Public Use
  Company Number: GB-AMGEN INC.-GBRSP2014043566

PATIENT
  Age: 50 Year
  Sex: Female

DRUGS (2)
  1. PROLIA [Suspect]
     Indication: PROPHYLAXIS
     Dosage: 60 MG, Q6MO
     Route: 065
     Dates: start: 201406
  2. AMITRIPTYLINE [Concomitant]

REACTIONS (1)
  - Cellulitis [Not Recovered/Not Resolved]
